FAERS Safety Report 24771183 (Version 3)
Quarter: 2025Q3

REPORT INFORMATION
  Report Type: Report from Study
  Country: US (occurrence: US)
  Receive Date: 20241224
  Receipt Date: 20250929
  Transmission Date: 20251021
  Serious: Yes (Other)
  Sender: TAKEDA
  Company Number: US-TAKEDA-2022TUS100198

PATIENT
  Age: 59 Year
  Sex: Female

DRUGS (10)
  1. TEDUGLUTIDE [Suspect]
     Active Substance: TEDUGLUTIDE
     Indication: Short-bowel syndrome
     Dosage: 0.49 MILLILITER, QD
     Dates: start: 20221202
  2. TEDUGLUTIDE [Suspect]
     Active Substance: TEDUGLUTIDE
     Dosage: 0.49 MILLIGRAM, QD
     Dates: start: 20221203, end: 20221222
  3. TEDUGLUTIDE [Suspect]
     Active Substance: TEDUGLUTIDE
     Dosage: 0.15 MILLILITER, QD
     Dates: start: 202212, end: 20241205
  4. TEDUGLUTIDE [Suspect]
     Active Substance: TEDUGLUTIDE
     Dosage: 0.25 MILLIGRAM, QD
     Dates: start: 20241204, end: 20241205
  5. TEDUGLUTIDE [Suspect]
     Active Substance: TEDUGLUTIDE
     Dosage: 0.15 MILLILITER, QD
  6. TEDUGLUTIDE [Suspect]
     Active Substance: TEDUGLUTIDE
     Dosage: 5 MILLIGRAM, 1/WEEK
     Dates: end: 202507
  7. REGLAN [Concomitant]
     Active Substance: METOCLOPRAMIDE HYDROCHLORIDE
  8. PERCOCET [Concomitant]
     Active Substance: ACETAMINOPHEN\OXYCODONE HYDROCHLORIDE
  9. PANTOPRAZOLE [Concomitant]
     Active Substance: PANTOPRAZOLE
  10. ZEPBOUND [Concomitant]
     Active Substance: TIRZEPATIDE

REACTIONS (9)
  - Delirium [Unknown]
  - Pain [Unknown]
  - Stoma site erythema [Unknown]
  - Asthenia [Unknown]
  - Injection site bruising [Unknown]
  - Abdominal distension [Unknown]
  - Nausea [Unknown]
  - Vomiting [Unknown]
  - Abdominal pain [Unknown]

NARRATIVE: CASE EVENT DATE: 20221206
